FAERS Safety Report 10876905 (Version 2)
Quarter: 2015Q1

REPORT INFORMATION
  Report Type: Report from Study
  Country: DE (occurrence: DE)
  Receive Date: 20150302
  Receipt Date: 20150316
  Transmission Date: 20150721
  Serious: Yes (Other)
  Sender: FDA-Public Use
  Company Number: DE-BEH-2014047224

PATIENT
  Sex: Male
  Weight: 71 kg

DRUGS (15)
  1. PRIVIGEN [Suspect]
     Active Substance: HUMAN IMMUNOGLOBULIN G
     Indication: PRIMARY IMMUNODEFICIENCY SYNDROME
     Dosage: INFUSION RATE: MINIMUM: 0.8ML/MIN; MAXIMUM: 6ML/MIN
     Dates: start: 20141202, end: 20141202
  2. BISOPROLOL [Concomitant]
     Active Substance: BISOPROLOL
  3. PRIVIGEN [Suspect]
     Active Substance: HUMAN IMMUNOGLOBULIN G
     Dosage: INFUSION RATE: MINIMUM: 0.8ML/MIN; MAXIMUM: 6ML/MIN
     Dates: start: 20141023, end: 20141023
  4. XARELTO [Concomitant]
     Active Substance: RIVAROXABAN
  5. PANTOPRAZOLE [Concomitant]
     Active Substance: PANTOPRAZOLE SODIUM
  6. TAMSULOSIN [Concomitant]
     Active Substance: TAMSULOSIN
  7. AMLODIPIN [Concomitant]
     Active Substance: AMLODIPINE BESYLATE
  8. PRIVIGEN [Suspect]
     Active Substance: HUMAN IMMUNOGLOBULIN G
     Indication: SELECTIVE IGG SUBCLASS DEFICIENCY
     Dosage: INFUSION RATE: MINIMUM: 0.8ML/MIN; MAXIMUM: 6ML/MIN
     Dates: start: 20141002, end: 20141002
  9. HCT DEXEL [Concomitant]
  10. PREDNISOLUT [Concomitant]
     Active Substance: PREDNISOLONE
     Indication: PREMEDICATION
     Route: 042
  11. PRIVIGEN [Suspect]
     Active Substance: HUMAN IMMUNOGLOBULIN G
     Dates: start: 20110815
  12. PRAVA-TEVA [Concomitant]
  13. PRIVIGEN [Suspect]
     Active Substance: HUMAN IMMUNOGLOBULIN G
     Dosage: INFUSION RATE: MINIMUM: 0.8ML/MIN; MAXIMUM: 6ML/MIN
     Route: 042
     Dates: start: 20141113, end: 20141113
  14. VALSARTAN. [Concomitant]
     Active Substance: VALSARTAN
  15. FINASTERID [Concomitant]

REACTIONS (6)
  - Dysaesthesia [Not Recovered/Not Resolved]
  - Paraesthesia [Not Recovered/Not Resolved]
  - Arthralgia [Not Recovered/Not Resolved]
  - Cough [Recovered/Resolved]
  - Small fibre neuropathy [Not Recovered/Not Resolved]
  - Nasopharyngitis [Recovered/Resolved]

NARRATIVE: CASE EVENT DATE: 2011
